FAERS Safety Report 25952034 (Version 1)
Quarter: 2025Q4

REPORT INFORMATION
  Report Type: Spontaneous
  Country: EU (occurrence: EU)
  Receive Date: 20251023
  Receipt Date: 20251023
  Transmission Date: 20260117
  Serious: Yes (Hospitalization)
  Sender: AUROBINDO
  Company Number: EU-AFSSAPS-PV2025000756

PATIENT
  Age: 66 Year
  Sex: Male
  Weight: 115 kg

DRUGS (8)
  1. POMALIDOMIDE [Suspect]
     Active Substance: POMALIDOMIDE
     Indication: Plasma cell myeloma refractory
     Dosage: 3 MILLIGRAM, UNK (D1-D21 EACH MONTH)
     Route: 048
     Dates: start: 20231027
  2. DARZALEX [Suspect]
     Active Substance: DARATUMUMAB
     Indication: Plasma cell myeloma refractory
     Dosage: 7 CURES DARATUMUMAB + CARFILZOMIB + DEXA
     Route: 065
     Dates: start: 2022, end: 2023
  3. DARZALEX [Suspect]
     Active Substance: DARATUMUMAB
     Dosage: WEEKLY UNTIL 04/05/2025 THEN SWITCH TO MONTHLY
     Route: 065
     Dates: start: 20231027
  4. LENALIDOMIDE [Suspect]
     Active Substance: LENALIDOMIDE
     Indication: Plasma cell myeloma
     Dosage: 4 VRD CURES (BORTEZOMIB + LENALIDOMIDE + DEXA)
     Route: 048
     Dates: start: 2020, end: 2020
  5. LENALIDOMIDE [Suspect]
     Active Substance: LENALIDOMIDE
     Dosage: POST-AUTOGRAFT MAINTENANCE
     Route: 048
     Dates: start: 20210119, end: 202301
  6. DEXAMETHASONE [Concomitant]
     Active Substance: DEXAMETHASONE
     Indication: Plasma cell myeloma refractory
     Dosage: 4 CURES
     Route: 065
     Dates: start: 2020, end: 2020
  7. DEXAMETHASONE [Concomitant]
     Active Substance: DEXAMETHASONE
     Dosage: 7 CURES
     Route: 065
     Dates: start: 2022, end: 2023
  8. DEXAMETHASONE [Concomitant]
     Active Substance: DEXAMETHASONE
     Dosage: WEEKLY TREATMENTS UNTIL 04/05/2024 THEN MONTHLY
     Route: 065
     Dates: start: 20231027

REACTIONS (3)
  - Myalgia [Not Recovered/Not Resolved]
  - Muscle spasms [Not Recovered/Not Resolved]
  - Blood creatine phosphokinase increased [Not Recovered/Not Resolved]

NARRATIVE: CASE EVENT DATE: 20200101
